FAERS Safety Report 11839196 (Version 1)
Quarter: 2015Q4

REPORT INFORMATION
  Report Type: Spontaneous
  Country: ES (occurrence: ES)
  Receive Date: 20151216
  Receipt Date: 20151216
  Transmission Date: 20160305
  Serious: Yes (Death, Other)
  Sender: FDA-Public Use
  Company Number: ES-PAR PHARMACEUTICAL COMPANIES-2015SCPR014608

PATIENT

DRUGS (5)
  1. GEFITINIB [Suspect]
     Active Substance: GEFITINIB
     Indication: LUNG ADENOCARCINOMA RECURRENT
     Dosage: UNK UNK, UNKNOWN
     Route: 065
     Dates: start: 201303
  2. DEXAMETHASONE. [Suspect]
     Active Substance: DEXAMETHASONE
     Indication: LUNG ADENOCARCINOMA RECURRENT
     Dosage: 1 TO 4 MG / DAY
     Route: 048
     Dates: start: 201303, end: 201306
  3. GEFITINIB [Suspect]
     Active Substance: GEFITINIB
     Dosage: UNK UNK, UNKNOWN
     Route: 065
     Dates: end: 20130709
  4. ZOLEDRONIC ACID [Concomitant]
     Active Substance: ZOLEDRONIC ACID
     Indication: LUNG ADENOCARCINOMA RECURRENT
     Dosage: UNK UNK, UNKNOWN
     Route: 065
     Dates: start: 201303
  5. DEXAMETHASONE. [Suspect]
     Active Substance: DEXAMETHASONE
     Indication: LUNG ADENOCARCINOMA RECURRENT
     Dosage: 4 MG, EVERY 8 HOURS
     Route: 042
     Dates: start: 20130227, end: 20130303

REACTIONS (12)
  - Emphysematous cystitis [Recovering/Resolving]
  - Ascites [Unknown]
  - Vomiting [Unknown]
  - Diarrhoea [Unknown]
  - Hyperglycaemia [Unknown]
  - Neurological decompensation [Unknown]
  - Staphylococcus test positive [None]
  - Immunosuppression [Unknown]
  - Performance status decreased [Unknown]
  - Blood sodium decreased [None]
  - Pneumoperitoneum [Recovering/Resolving]
  - Escherichia test positive [None]

NARRATIVE: CASE EVENT DATE: 2013
